FAERS Safety Report 20621824 (Version 1)
Quarter: 2022Q1

REPORT INFORMATION
  Report Type: Spontaneous
  Country: IT (occurrence: IT)
  Receive Date: 20220322
  Receipt Date: 20220322
  Transmission Date: 20220423
  Serious: Yes (Other)
  Sender: FDA-Public Use
  Company Number: IT-SK LIFE SCIENCE, INC-SKPVG-2022-000159

PATIENT

DRUGS (1)
  1. XCOPRI [Suspect]
     Active Substance: CENOBAMATE
     Indication: Partial seizures
     Dosage: 100 MILLIGRAM, QD
     Route: 048

REACTIONS (2)
  - Hallucination, auditory [Unknown]
  - Tremor [Unknown]

NARRATIVE: CASE EVENT DATE: 20220307
